FAERS Safety Report 13376623 (Version 1)
Quarter: 2017Q1

REPORT INFORMATION
  Report Type: Spontaneous
  Country: US (occurrence: US)
  Receive Date: 20170327
  Receipt Date: 20170327
  Transmission Date: 20170429
  Serious: No
  Sender: FDA-Public Use
  Company Number: None

PATIENT
  Age: 34 Year
  Sex: Female
  Weight: 53.1 kg

DRUGS (1)
  1. SERTRALINE [Suspect]
     Active Substance: SERTRALINE HYDROCHLORIDE
     Indication: ANXIETY
     Dates: start: 20170311, end: 20170326

REACTIONS (5)
  - Lymphadenopathy [None]
  - Speech disorder [None]
  - Lymph node pain [None]
  - Cognitive disorder [None]
  - Somnolence [None]

NARRATIVE: CASE EVENT DATE: 20170326
